FAERS Safety Report 9196790 (Version 2)
Quarter: 2013Q3

REPORT INFORMATION
  Report Type: Spontaneous
  Country: JP (occurrence: JP)
  Receive Date: 20130328
  Receipt Date: 20130911
  Transmission Date: 20140515
  Serious: Yes (Death)
  Sender: FDA-Public Use
  Company Number: JP-BAYER-2012-110917

PATIENT
  Age: 66 Year
  Sex: Male
  Weight: 67 kg

DRUGS (2)
  1. NEXAVAR [Suspect]
     Indication: HEPATOCELLULAR CARCINOMA
     Dosage: 400 MG, BID
     Route: 048
     Dates: start: 20120806, end: 20121017
  2. NEXAVAR [Suspect]
     Indication: HEPATOCELLULAR CARCINOMA
     Dosage: 200 MG, BID
     Route: 048
     Dates: start: 20121018, end: 20121115

REACTIONS (14)
  - Hepatocellular carcinoma [Fatal]
  - Haemoptysis [Recovering/Resolving]
  - Epistaxis [Recovering/Resolving]
  - Palmar-plantar erythrodysaesthesia syndrome [Not Recovered/Not Resolved]
  - Oropharyngeal pain [Recovering/Resolving]
  - Hypertension [Recovering/Resolving]
  - Dysphonia [Not Recovered/Not Resolved]
  - Diarrhoea [Recovering/Resolving]
  - Mucous membrane disorder [Recovering/Resolving]
  - Constipation [Recovering/Resolving]
  - Blood bilirubin increased [Not Recovered/Not Resolved]
  - Blood creatinine increased [Not Recovered/Not Resolved]
  - Blood urea increased [Not Recovered/Not Resolved]
  - Decreased appetite [Recovering/Resolving]
